FAERS Safety Report 15964648 (Version 1)
Quarter: 2019Q1

REPORT INFORMATION
  Report Type: Other
  Country: DE (occurrence: DE)
  Receive Date: 20190215
  Receipt Date: 20190215
  Transmission Date: 20190418
  Serious: Yes (Other)
  Sender: FDA-Public Use
  Company Number: DE-MACLEODS PHARMACEUTICALS US LTD-MAC2019020078

PATIENT

DRUGS (1)
  1. ESCITALOPRAM OXALATE. [Suspect]
     Active Substance: ESCITALOPRAM OXALATE
     Indication: PRODUCT USED FOR UNKNOWN INDICATION
     Dosage: 5 MILLIGRAM, QD
     Route: 065
     Dates: start: 201512, end: 201705

REACTIONS (4)
  - Visual acuity reduced [Unknown]
  - Constipation [Unknown]
  - Varicose vein [Unknown]
  - Macular fibrosis [Unknown]

NARRATIVE: CASE EVENT DATE: 2017
